FAERS Safety Report 6921062-3 (Version None)
Quarter: 2010Q3

REPORT INFORMATION
  Report Type: 
  Country: None (occurrence: None)
  Receive Date: 20100812
  Receipt Date: 20100802
  Transmission Date: 20110219
  Serious: Yes (Hospitalization)
  Sender: FDA-Public Use
  Company Number: US-ROCHE-719167

PATIENT
  Age: 50 Year
  Sex: Male

DRUGS (2)
  1. PEG-INTRON [Suspect]
     Dosage: 05 MILLION UNITS/ DAY
     Route: 065
  2. RIBAVIRIN [Suspect]
     Route: 065

REACTIONS (2)
  - COR PULMONALE [None]
  - PULMONARY HYPERTENSION [None]
